FAERS Safety Report 6644596-8 (Version None)
Quarter: 2010Q1

REPORT INFORMATION
  Report Type: 
  Country: None (occurrence: None)
  Receive Date: 20100322
  Receipt Date: 20100315
  Transmission Date: 20100710
  Serious: Yes (Other)
  Sender: FDA-Public Use
  Company Number: US-ELI_LILLY_AND_COMPANY-US200911001297

PATIENT
  Age: 57 Year
  Sex: Male
  Weight: 104.31 kg

DRUGS (11)
  1. BYETTA [Suspect]
     Dosage: 5 UG, 2/D
     Dates: start: 20070201
  2. BYETTA [Suspect]
     Dosage: 10 UG, 2/D
     Route: 058
     Dates: end: 20091012
  3. LANTUS [Concomitant]
     Dosage: UNK, UNKNOWN
     Route: 065
  4. GLYBURIDE [Concomitant]
     Dosage: UNK, UNKNOWN
     Route: 065
  5. METFORMIN [Concomitant]
     Dosage: UNK, UNKNOWN
     Route: 065
  6. ACTOS [Concomitant]
     Dosage: UNK, UNKNOWN
     Route: 065
  7. LOTREL [Concomitant]
     Dosage: UNK, UNKNOWN
     Route: 065
  8. PLAVIX [Concomitant]
     Dosage: UNK, UNKNOWN
     Route: 065
  9. METOPROLOL TARTRATE [Concomitant]
     Dosage: UNK, UNKNOWN
     Route: 065
  10. CRESTOR [Concomitant]
     Dosage: UNK, UNKNOWN
     Route: 065
  11. HYDROCHLORTHIAZID [Concomitant]
     Dosage: UNK, UNKNOWN
     Route: 065

REACTIONS (2)
  - OFF LABEL USE [None]
  - PANCREATITIS [None]
